FAERS Safety Report 25083521 (Version 1)
Quarter: 2025Q1

REPORT INFORMATION
  Report Type: Other
  Country: CA (occurrence: CA)
  Receive Date: 20250317
  Receipt Date: 20250317
  Transmission Date: 20250409
  Serious: Yes (Death, Hospitalization, Other)
  Sender: APOTEX
  Company Number: CA-APOTEX-2025AP002365

PATIENT
  Age: 82 Year
  Sex: Male

DRUGS (1)
  1. LENALIDOMIDE [Suspect]
     Active Substance: LENALIDOMIDE
     Indication: Plasma cell myeloma refractory
     Dosage: 5 MILLIGRAM, QD
     Route: 048
     Dates: start: 20240429, end: 2025

REACTIONS (2)
  - Death [Fatal]
  - Acute myocardial infarction [Unknown]

NARRATIVE: CASE EVENT DATE: 20250307
